FAERS Safety Report 8375552-X (Version None)
Quarter: 2012Q1

REPORT INFORMATION
  Report Type: 
  Country: None (occurrence: None)
  Receive Date: 20120323
  Receipt Date: 20110301
  Transmission Date: 20120608
  Serious: Yes (Other)
  Sender: FDA-Public Use
  Company Number: 163-21880-11030633

PATIENT
  Age: 80 Year
  Sex: Female
  Weight: 56.246 kg

DRUGS (2)
  1. HYDROCODONE BITARTRATE [Concomitant]
  2. REVLIMID [Suspect]
     Indication: MULTIPLE MYELOMA
     Dosage: 25 MG, DAILY FOR 21 DAYS OF 28 DAYS, PO
     Route: 048
     Dates: start: 20101001

REACTIONS (4)
  - DYSPHONIA [None]
  - WEIGHT DECREASED [None]
  - RASH [None]
  - ASTHENIA [None]
